FAERS Safety Report 22287848 (Version 1)
Quarter: 2023Q2

REPORT INFORMATION
  Report Type: Spontaneous
  Country: CA (occurrence: CA)
  Receive Date: 20230505
  Receipt Date: 20230505
  Transmission Date: 20230721
  Serious: Yes (Other)
  Sender: FDA-Public Use
  Company Number: CA-AMGEN-CANSP2023075769

PATIENT
  Age: 70 Year
  Sex: Female
  Weight: 62.132 kg

DRUGS (16)
  1. PROLIA [Suspect]
     Active Substance: DENOSUMAB
     Indication: Osteoporosis prophylaxis
     Dosage: 60 MILLIGRAM, Q6MO
     Route: 058
  2. BISOPROLOL [Concomitant]
     Active Substance: BISOPROLOL
  3. CLONAZEPAM [Concomitant]
     Active Substance: CLONAZEPAM
  4. PERINDOPRIL [Concomitant]
     Active Substance: PERINDOPRIL
  5. CYCLOBENZAPRINE [Concomitant]
     Active Substance: CYCLOBENZAPRINE
  6. DOCUSATE SODIUM [Concomitant]
     Active Substance: DOCUSATE SODIUM
  7. FUROSEMIDE [Concomitant]
     Active Substance: FUROSEMIDE
  8. Metadol [Concomitant]
     Route: 048
  9. NABILONE [Concomitant]
     Active Substance: NABILONE
  10. POTASSIUM [Concomitant]
     Active Substance: POTASSIUM
     Dosage: UNK
     Route: 042
  11. SHINGRIX [Concomitant]
     Active Substance: RECOMBINANT VARICELLA ZOSTER VIRUS (VZV) GLYCOPROTEIN E
     Route: 030
  12. SYNTHROID [Concomitant]
     Active Substance: LEVOTHYROXINE SODIUM
  13. VAGIFEM [Concomitant]
     Active Substance: ESTRADIOL
     Route: 067
  14. LATANOPROST\TIMOLOL MALEATE [Concomitant]
     Active Substance: LATANOPROST\TIMOLOL MALEATE
  15. ZAROXOLYN [Concomitant]
     Active Substance: METOLAZONE
  16. ZOLPIDEM [Concomitant]
     Active Substance: ZOLPIDEM TARTRATE

REACTIONS (4)
  - Exostosis of jaw [Not Recovered/Not Resolved]
  - Tooth extraction [Not Recovered/Not Resolved]
  - Tooth infection [Not Recovered/Not Resolved]
  - Osteonecrosis of jaw [Not Recovered/Not Resolved]
